FAERS Safety Report 17464109 (Version 1)
Quarter: 2020Q1

REPORT INFORMATION
  Report Type: Spontaneous
  Country: FR (occurrence: FR)
  Receive Date: 20200226
  Receipt Date: 20200226
  Transmission Date: 20200409
  Serious: Yes (Other)
  Sender: FDA-Public Use
  Company Number: FR-FRESENIUS KABI-FK202001823

PATIENT
  Age: 76 Year
  Sex: Male

DRUGS (1)
  1. ACYCLOVIR SODIUM (MANUFACTURER UNKNOWN) [Suspect]
     Active Substance: ACYCLOVIR SODIUM
     Indication: HERPES ZOSTER MENINGOENCEPHALITIS
     Route: 042

REACTIONS (1)
  - Acute kidney injury [Recovered/Resolved]
